FAERS Safety Report 9807574 (Version 1)
Quarter: 2014Q1

REPORT INFORMATION
  Report Type: Spontaneous
  Country: US (occurrence: US)
  Receive Date: 20140110
  Receipt Date: 20140110
  Transmission Date: 20141002
  Serious: No
  Sender: FDA-Public Use
  Company Number: US-SANOFI-AVENTIS-2013SA040931

PATIENT
  Sex: Male

DRUGS (15)
  1. PLAVIX [Suspect]
     Indication: PRODUCT USED FOR UNKNOWN INDICATION
     Route: 048
  2. AVANDIA [Concomitant]
  3. TRICOR [Concomitant]
  4. METOPROLOL [Concomitant]
  5. MAVIK [Concomitant]
  6. ZETIA [Concomitant]
  7. NIASPAN [Concomitant]
  8. LEXAPRO [Concomitant]
  9. LIPITOR [Concomitant]
  10. ASPIRIN [Concomitant]
  11. HUMALOG [Concomitant]
  12. LANTUS [Concomitant]
  13. GLUCOSAMINE [Concomitant]
  14. COD LIVER OIL [Concomitant]
  15. FISH OIL [Concomitant]

REACTIONS (2)
  - Tooth abscess [Unknown]
  - Periodontal disease [Unknown]
